FAERS Safety Report 5873531-5 (Version None)
Quarter: 2008Q3

REPORT INFORMATION
  Report Type: 
  Country: None (occurrence: None)
  Receive Date: 20080829
  Receipt Date: 20080828
  Transmission Date: 20090109
  Serious: Yes (Hospitalization)
  Sender: FDA-Public Use
  Company Number: GRT-2005-10226

PATIENT
  Age: 68 Year
  Sex: Male
  Weight: 84 kg

DRUGS (6)
  1. LIDOCAINE [Suspect]
     Indication: POST HERPETIC NEURALGIA
     Dates: start: 20040415
  2. KAMIREN [Concomitant]
  3. POSTAMOL [Concomitant]
  4. ACETAMINOPHEN [Concomitant]
  5. ACARD [Concomitant]
  6. TERAZOSIN HCL [Concomitant]

REACTIONS (2)
  - ABDOMINAL PAIN [None]
  - COLONIC POLYP [None]
